FAERS Safety Report 22307139 (Version 4)
Quarter: 2025Q1

REPORT INFORMATION
  Report Type: Spontaneous
  Country: CO (occurrence: CO)
  Receive Date: 20230511
  Receipt Date: 20250225
  Transmission Date: 20250409
  Serious: Yes (Other)
  Sender: MYLAN
  Company Number: CO-MYLANLABS-2023M1048286

PATIENT
  Age: 9 Year
  Sex: Male
  Weight: 18.1 kg

DRUGS (15)
  1. CYSTAGON [Suspect]
     Active Substance: CYSTEAMINE BITARTRATE
     Indication: Cystinosis
  2. CYSTAGON [Suspect]
     Active Substance: CYSTEAMINE BITARTRATE
     Dosage: 1050 MILLIGRAM, QD (EVERY 24 HOURS DIVIDED IN 4 TAKES)
     Dates: start: 20210419
  3. CYSTAGON [Suspect]
     Active Substance: CYSTEAMINE BITARTRATE
     Dosage: 1200 MILLIGRAM, QD (EVERY 24 HRS DIVIDED IN 4 TAKES)
     Dates: start: 2023
  4. CYSTAGON [Suspect]
     Active Substance: CYSTEAMINE BITARTRATE
     Dosage: 1800 MILLIGRAM, Q6H (IN SEQUENCE 3MG ? 2 MG ? 3 MG ? 2MG)
  5. CYSTEAMINE HYDROCHLORIDE [Suspect]
     Active Substance: CYSTEAMINE HYDROCHLORIDE
     Indication: Cystinosis
     Dosage: 4 GTT DROPS, Q6H (2 DROPS IN EACH EYE EVERY 6 HOURS)
     Dates: start: 20140402
  6. CYSTEAMINE HYDROCHLORIDE [Suspect]
     Active Substance: CYSTEAMINE HYDROCHLORIDE
  7. Kidcal [Concomitant]
     Indication: Product used for unknown indication
     Dosage: 5 MILLILITER, BID (EVERY 12 HOURS, VO)
  8. NUCTIS D [Concomitant]
     Indication: Product used for unknown indication
     Dosage: 7 GTT DROPS, BID (EACH 12 HRS)
  9. L carnitina [Concomitant]
     Indication: Product used for unknown indication
     Dosage: 200 MILLIGRAM, Q8H (EVERY 8 HRS)
  10. POTASSIUM CHLORIDE [Concomitant]
     Active Substance: POTASSIUM CHLORIDE
     Indication: Product used for unknown indication
     Dosage: UNK, QD (1 VIAL EVERY 24 HRS)
  11. ASCORBIC ACID [Concomitant]
     Active Substance: ASCORBIC ACID
     Indication: Vitamin supplementation
     Dosage: 10 GTT DROPS, QD (EVERY 24 HRS)
  12. ASCORBIC ACID [Concomitant]
     Active Substance: ASCORBIC ACID
     Dosage: 20 GTT DROPS, QD (PER DAY)
  13. FERROUS SULFATE [Concomitant]
     Active Substance: FERROUS SULFATE
     Indication: Vitamin supplementation
     Dosage: 10 GTT DROPS, BID (EVERY 12 HRS )
  14. OMEPRAZOLE [Concomitant]
     Active Substance: OMEPRAZOLE
     Indication: Gastrointestinal disorder
     Dosage: 10 MILLIGRAM, QD
  15. CALCITRIOL [Concomitant]
     Active Substance: CALCITRIOL
     Indication: Vitamin supplementation
     Dosage: 1 MICROGRAM, QD (PER DAY)

REACTIONS (1)
  - Amino acid level increased [Unknown]

NARRATIVE: CASE EVENT DATE: 20230301
